FAERS Safety Report 23175784 (Version 2)
Quarter: 2023Q4

REPORT INFORMATION
  Report Type: Other
  Country: US (occurrence: None)
  Receive Date: 20231113
  Receipt Date: 20231204
  Transmission Date: 20240110
  Serious: Yes (Hospitalization)
  Sender: FDA-Public Use
  Company Number: US-ROCHE-1999034

PATIENT
  Age: 52 Year
  Sex: Female
  Weight: 62.652 kg

DRUGS (8)
  1. RITUXAN [Suspect]
     Active Substance: RITUXIMAB
     Indication: Myasthenia gravis
     Dosage: SUBSQUENT DOSES ON: 09/AUG/2016,16/AUG/2016, 23/AUG/2016  30/AUG/2016, 01/FEB/2017, 08/FEB/2017, 15/
     Route: 042
     Dates: start: 2015
  2. RITUXAN [Suspect]
     Active Substance: RITUXIMAB
     Dosage: EVERY 6 MONTHS
     Route: 042
  3. CELLCEPT [Suspect]
     Active Substance: MYCOPHENOLATE MOFETIL
     Indication: Myasthenia gravis
     Route: 065
  4. TYLENOL [Concomitant]
     Active Substance: ACETAMINOPHEN
  5. BENADRYL [Concomitant]
     Active Substance: DIPHENHYDRAMINE HYDROCHLORIDE
  6. SOLU-MEDROL [Concomitant]
     Active Substance: METHYLPREDNISOLONE SODIUM SUCCINATE
  7. EPINEPHRINE [Concomitant]
     Active Substance: EPINEPHRINE
  8. SOLU-CORTEF [Concomitant]
     Active Substance: HYDROCORTISONE SODIUM SUCCINATE
     Indication: Product used for unknown indication
     Route: 065

REACTIONS (8)
  - Off label use [Unknown]
  - Off label use [Unknown]
  - Dysarthria [Not Recovered/Not Resolved]
  - Bulbar palsy [Not Recovered/Not Resolved]
  - Dyspnoea [Not Recovered/Not Resolved]
  - Myasthenia gravis [Unknown]
  - Myasthenia gravis crisis [Unknown]
  - Viral upper respiratory tract infection [Unknown]
